FAERS Safety Report 6565397-5 (Version None)
Quarter: 2010Q1

REPORT INFORMATION
  Report Type: 
  Country: None (occurrence: None)
  Receive Date: 20100201
  Receipt Date: 20100114
  Transmission Date: 20100710
  Serious: Yes (Death, Life-Threatening, Hospitalization, Disabling, Other)
  Sender: FDA-Public Use
  Company Number: BR-SANOFI-AVENTIS-2010SA001489

PATIENT
  Age: 75 Year
  Sex: Female
  Weight: 71 kg

DRUGS (4)
  1. ELOXATIN [Suspect]
     Indication: COLON NEOPLASM
     Route: 041
     Dates: start: 20090330, end: 20091123
  2. 5-FU [Concomitant]
     Indication: COLON CANCER
     Route: 042
     Dates: start: 20090330, end: 20091123
  3. LEUCOVORIN CALCIUM [Concomitant]
     Indication: COLON CANCER
     Route: 042
     Dates: start: 20090330, end: 20091123
  4. AVASTIN [Concomitant]
     Indication: COLON CANCER
     Route: 042
     Dates: start: 20090330, end: 20091123

REACTIONS (3)
  - DYSPNOEA [None]
  - ORGANISING PNEUMONIA [None]
  - RESPIRATORY ARREST [None]
